FAERS Safety Report 6217784-2 (Version None)
Quarter: 2009Q2

REPORT INFORMATION
  Report Type: 
  Country: None (occurrence: None)
  Receive Date: 20090608
  Receipt Date: 20090529
  Transmission Date: 20091009
  Serious: Yes (Hospitalization, Other)
  Sender: FDA-Public Use
  Company Number: US-AMGEN-QUU349242

PATIENT
  Sex: Female

DRUGS (14)
  1. EPOGEN [Suspect]
     Indication: RENAL FAILURE CHRONIC
  2. MINOXIDIL [Concomitant]
  3. NORVASC [Concomitant]
  4. ENALAPRIL [Concomitant]
  5. IRON [Concomitant]
  6. NITROGLYCERIN [Concomitant]
  7. CARVEDILOL [Concomitant]
  8. CLONIDINE [Concomitant]
  9. PREDNISONE [Concomitant]
  10. PHOSLO [Concomitant]
  11. LABETALOL HCL [Concomitant]
  12. PROTONIX [Concomitant]
  13. NEPHROCAPS [Concomitant]
  14. PROGRAF [Concomitant]

REACTIONS (2)
  - HAEMOGLOBIN DECREASED [None]
  - HEPATITIS B ANTIBODY [None]
